FAERS Safety Report 9522754 (Version 1)
Quarter: 2013Q1

REPORT INFORMATION
  Report Type: Spontaneous
  Country: US (occurrence: None)
  Receive Date: 20130305
  Receipt Date: 20130305
  Transmission Date: 20140127
  Serious: Yes (Other)
  Sender: FDA-Public Use
  Company Number: 163-21880-12013295

PATIENT
  Age: 76 Year
  Sex: Female
  Weight: 63.05 kg

DRUGS (22)
  1. REVLIMID [Suspect]
     Indication: PLASMA CELL MYELOMA
     Route: 048
     Dates: start: 20111201
  2. PLAVIX (CLOPIDOGREL SULFATE) (TABLETS) [Concomitant]
  3. LOSARTAN/HCTZ (HYDROCHLOROTHIAZIDE W/LOSARTAN) [Concomitant]
  4. ZETIA (EZETIMIBE) (TABLETS) [Concomitant]
  5. CRESTOR (ROSUVASTATIN) (TABLETS) [Concomitant]
  6. ESTRACE (ESTRADIOL) (TABLETS) [Concomitant]
  7. GABAPENTIN (GABAPENTIN) (CAPSULES) [Concomitant]
  8. MELOXICAM (MELOXICAM) (TABLETS) [Concomitant]
  9. SYNTHROID (LEVOTHYROXINE SODIUM) (TABLETS) [Concomitant]
  10. DEXAMETHASONE (DEXAMETHASONE) (TABLETS) [Concomitant]
  11. LOVAZA (OMEGA-3 MARINE TRIGLYCERIDES) (CAPSULES) [Concomitant]
  12. BABY ASPIRIN (ACETYLSALICYLIC ACID) [Concomitant]
  13. CALCIUM PLUS VITAMIN D (CALCIUM D3 ^STADA^) [Concomitant]
  14. CRANBERRY (CRANBERRY BERCO) [Concomitant]
  15. LEXAPRO (ESCITALOPRAM OXALATE) [Concomitant]
  16. LORAZEPAM (LORAZEPAM) (TABLETS) [Concomitant]
  17. ZOLEDRONIC ACID (ZOLEDRONIC ACID) [Concomitant]
  18. NORMAL SALINE (SODIUM CHLORIDE) [Concomitant]
  19. ANUSOL (ANUSOL) (CREAM) [Concomitant]
  20. CIPRO (CIPROFLOXACIN) (TABLETS) [Concomitant]
  21. PANTOPRAZOLE (PANTOPRAZOLE) (TABLETS) [Concomitant]
  22. PROCHLORPERAZINE MALEATE (PROCHLORPERAZINE MALEATE) (TABLETS) [Concomitant]

REACTIONS (6)
  - Neutropenia [None]
  - Nausea [None]
  - Asthenia [None]
  - Full blood count decreased [None]
  - Anaemia [None]
  - Thrombocytopenia [None]
